FAERS Safety Report 7439644-1 (Version None)
Quarter: 2011Q2

REPORT INFORMATION
  Report Type: 
  Country: None (occurrence: None)
  Receive Date: 20110427
  Receipt Date: 20110422
  Transmission Date: 20111010
  Serious: Yes (Other)
  Sender: FDA-Public Use
  Company Number: US-AMGEN-USASP2011014993

PATIENT
  Age: 71 Year
  Sex: Female
  Weight: 67.12 kg

DRUGS (5)
  1. NPLATE [Suspect]
     Indication: IDIOPATHIC THROMBOCYTOPENIC PURPURA
     Dosage: 210 A?G, QWK
     Route: 058
     Dates: start: 20110111
  2. RITUXAN [Concomitant]
     Dosage: UNK UNK, QWK
  3. BLOOD TRANSFUSION, AUXILIARY PRODUCTS [Concomitant]
     Dosage: UNK
     Route: 042
     Dates: start: 20110321, end: 20110321
  4. IVIGLOB-EX [Concomitant]
     Dosage: UNK
     Route: 042
     Dates: start: 20110318, end: 20110319
  5. FOLIC ACID [Concomitant]
     Dosage: UNK UNK, QD

REACTIONS (10)
  - JAUNDICE [None]
  - PLATELET COUNT INCREASED [None]
  - COUGH [None]
  - PLATELET COUNT DECREASED [None]
  - DYSGEUSIA [None]
  - PETECHIAE [None]
  - DECREASED APPETITE [None]
  - NAUSEA [None]
  - PURPURA [None]
  - FATIGUE [None]
